FAERS Safety Report 23231038 (Version 1)
Quarter: 2023Q4

REPORT INFORMATION
  Report Type: Spontaneous
  Country: IN (occurrence: IN)
  Receive Date: 20231127
  Receipt Date: 20231127
  Transmission Date: 20240109
  Serious: Yes (Hospitalization, Other)
  Sender: FDA-Public Use
  Company Number: IN-SUN PHARMACEUTICAL INDUSTRIES LTD-2023R1-420363

PATIENT

DRUGS (3)
  1. DICLOFENAC [Suspect]
     Active Substance: DICLOFENAC
     Indication: Pain
     Dosage: UNK
     Route: 064
  2. ACETAMINOPHEN [Suspect]
     Active Substance: ACETAMINOPHEN
     Indication: Pain
     Dosage: UNK
     Route: 064
  3. ROPIVACAINE [Suspect]
     Active Substance: ROPIVACAINE
     Indication: Pain
     Dosage: UNK, 3.5 ML OF 0.75%
     Route: 064

REACTIONS (4)
  - Exposure during pregnancy [Unknown]
  - Premature baby [Unknown]
  - Foetal distress syndrome [Recovering/Resolving]
  - Respiratory distress [Recovering/Resolving]
